FAERS Safety Report 20199327 (Version 1)
Quarter: 2021Q4

REPORT INFORMATION
  Report Type: Spontaneous
  Country: FR (occurrence: FR)
  Receive Date: 20211217
  Receipt Date: 20211217
  Transmission Date: 20220303
  Serious: Yes (Hospitalization)
  Sender: FDA-Public Use
  Company Number: None

PATIENT
  Age: 57 Year
  Sex: Female

DRUGS (5)
  1. TADALAFIL [Suspect]
     Active Substance: TADALAFIL
     Indication: Toxicity to various agents
     Dosage: 28 DOSAGE FORM, TOTAL(28 COMPRIM?S)
     Route: 048
     Dates: start: 20211016, end: 20211016
  2. LOSARTAN [Suspect]
     Active Substance: LOSARTAN
     Indication: Toxicity to various agents
     Dosage: 20 DOSAGE FORM, TOTAL (20 COMPRIM?S)
     Route: 048
     Dates: start: 20211016, end: 20211016
  3. DOXYLAMINE SUCCINATE [Suspect]
     Active Substance: DOXYLAMINE SUCCINATE
     Indication: Toxicity to various agents
     Dosage: 20 DOSAGE FORM, TOTAL (20 COMPRIM?S)
     Route: 048
     Dates: start: 20211016, end: 20211016
  4. HYDROCHLOROTHIAZIDE [Suspect]
     Active Substance: HYDROCHLOROTHIAZIDE
     Indication: Toxicity to various agents
     Dosage: 20 DOSAGE FORM, TOTAL (20 COMPRIM?S)
     Route: 048
     Dates: start: 20211016, end: 20211016
  5. GLICLAZIDE [Suspect]
     Active Substance: GLICLAZIDE
     Indication: Toxicity to various agents
     Dosage: 45 DOSAGE FORM, TOTAL (45 COMPRIM?S)
     Route: 048
     Dates: start: 20211016, end: 20211016

REACTIONS (3)
  - Hypokalaemia [Recovered/Resolved]
  - Hypotension [Recovered/Resolved]
  - Hypoglycaemia [Recovered/Resolved]

NARRATIVE: CASE EVENT DATE: 20211016
